FAERS Safety Report 14068996 (Version 2)
Quarter: 2017Q4

REPORT INFORMATION
  Report Type: Report from Study
  Country: US (occurrence: US)
  Receive Date: 20171010
  Receipt Date: 20171106
  Transmission Date: 20180321
  Serious: Yes (Hospitalization, Other)
  Sender: FDA-Public Use
  Company Number: US-PFIZER INC-2017286551

PATIENT
  Age: 74 Year
  Sex: Female

DRUGS (2)
  1. IBRANCE [Suspect]
     Active Substance: PALBOCICLIB
     Indication: BREAST CANCER
     Dosage: 100 MG, CYCLIC [ONE CAPSULE DAILY FOR 21 DAYS ON, THEN 7 DAYS OFF]
     Route: 048
     Dates: start: 20170429, end: 20170808
  2. IBRANCE [Suspect]
     Active Substance: PALBOCICLIB
     Dosage: 100 MG, CYCLIC (ONE CAPSULE DAILY WITH FOOD FOR 21 DAYS ON THEN 7 DAYS OFF)
     Route: 048
     Dates: start: 20170817, end: 20171001

REACTIONS (12)
  - Alopecia [Unknown]
  - Stomatitis [Unknown]
  - Constipation [Not Recovered/Not Resolved]
  - Asthenia [Unknown]
  - Ascites [Unknown]
  - Breast pain [Unknown]
  - Musculoskeletal pain [Unknown]
  - Pulmonary pain [Unknown]
  - Haemoglobin decreased [Unknown]
  - White blood cell count decreased [Unknown]
  - Dyspnoea [Recovered/Resolved]
  - Fatigue [Recovered/Resolved]

NARRATIVE: CASE EVENT DATE: 2017
